FAERS Safety Report 25792129 (Version 1)
Quarter: 2025Q3

REPORT INFORMATION
  Report Type: Spontaneous
  Country: US (occurrence: US)
  Receive Date: 20250911
  Receipt Date: 20250911
  Transmission Date: 20251021
  Serious: No
  Sender: SANOFI AVENTIS
  Company Number: US-SA-2025SA268966

PATIENT
  Sex: Male
  Weight: 81 kg

DRUGS (17)
  1. KEVZARA [Suspect]
     Active Substance: SARILUMAB
     Indication: Polymyalgia rheumatica
     Dosage: 200 MG, QOW
     Route: 058
  2. BUMETANIDE [Concomitant]
     Active Substance: BUMETANIDE
  3. TRELEGY ELLIPTA [Concomitant]
     Active Substance: FLUTICASONE FUROATE\UMECLIDINIUM BROMIDE\VILANTEROL TRIFENATATE
  4. PREDNISONE [Concomitant]
     Active Substance: PREDNISONE
  5. ACYCLOVIR [Concomitant]
     Active Substance: ACYCLOVIR
  6. ELIQUIS [Concomitant]
     Active Substance: APIXABAN
  7. METOPROLOL SUCCINATE [Concomitant]
     Active Substance: METOPROLOL SUCCINATE
  8. TAMSULOSIN HYDROCHLORIDE [Concomitant]
     Active Substance: TAMSULOSIN HYDROCHLORIDE
  9. POTASSIUM CHLORIDE [Concomitant]
     Active Substance: POTASSIUM CHLORIDE
  10. MONTELUKAST SODIUM [Concomitant]
     Active Substance: MONTELUKAST SODIUM
  11. ALBUTEROL SULFATE [Concomitant]
     Active Substance: ALBUTEROL SULFATE
  12. TYLENOL [Concomitant]
     Active Substance: ACETAMINOPHEN
  13. CALCIUM [Concomitant]
     Active Substance: CALCIUM
  14. VITAMIN D3 + K2 [Concomitant]
  15. VITAMINS [Concomitant]
     Active Substance: VITAMINS
  16. COENZYME Q10 [Concomitant]
     Active Substance: DIETARY SUPPLEMENT\UBIDECARENONE
  17. SYSTANE (HYPROMELLOSE 2910 (4000 MPA.S)) [Concomitant]
     Active Substance: HYPROMELLOSE 2910 (4000 MPA.S)

REACTIONS (1)
  - Platelet count decreased [Unknown]
